FAERS Safety Report 4479438-2 (Version None)
Quarter: 2004Q4

REPORT INFORMATION
  Report Type: 
  Country: None (occurrence: None)
  Receive Date: 20041015
  Receipt Date: 20041001
  Transmission Date: 20050328
  Serious: Yes (Death, Hospitalization)
  Sender: FDA-Public Use
  Company Number: 2004GB02313

PATIENT
  Age: 84 Year
  Sex: Male

DRUGS (9)
  1. LISINOPRIL [Suspect]
  2. METFORMIN HCL [Suspect]
     Indication: DIABETES MELLITUS NON-INSULIN-DEPENDENT
     Dosage: 1000 MG BID PO
     Route: 048
  3. ROSIGLITAZONE MALEATE [Suspect]
     Indication: DIABETES MELLITUS NON-INSULIN-DEPENDENT
     Dosage: 4 MG DAILY PO
     Route: 048
  4. ASPIRIN [Concomitant]
  5. DOTHIEPIN HYDROCHLORIDE [Concomitant]
  6. FLUOXETINE [Concomitant]
  7. GLICLAZIDE [Concomitant]
  8. LEVOTHYROXINE SODIUM [Concomitant]
  9. RABEPRAZOLE SODIUM [Concomitant]

REACTIONS (11)
  - BUNDLE BRANCH BLOCK RIGHT [None]
  - CARDIAC FAILURE CONGESTIVE [None]
  - COAGULOPATHY [None]
  - HEPATIC FAILURE [None]
  - HEPATOCELLULAR DAMAGE [None]
  - HEPATOMEGALY [None]
  - ISCHAEMIC HEPATITIS [None]
  - LACTIC ACIDOSIS [None]
  - LOWER RESPIRATORY TRACT INFECTION [None]
  - PLEURAL EFFUSION [None]
  - RENAL FAILURE [None]
